FAERS Safety Report 21952363 (Version 1)
Quarter: 2023Q1

REPORT INFORMATION
  Report Type: Spontaneous
  Country: CN (occurrence: CN)
  Receive Date: 20230203
  Receipt Date: 20230203
  Transmission Date: 20230417
  Serious: Yes (Hospitalization)
  Sender: FDA-Public Use
  Company Number: CN-ORGANON-O2301CHN002824

PATIENT
  Age: 76 Year
  Sex: Female
  Weight: 50 kg

DRUGS (3)
  1. FOSAMAX [Suspect]
     Active Substance: ALENDRONATE SODIUM
     Indication: Osteoporosis
     Dosage: 70MG, QW
     Route: 041
     Dates: start: 20230101, end: 20230118
  2. CEFTRIAXONE SODIUM [Suspect]
     Active Substance: CEFTRIAXONE SODIUM
     Indication: Periodontitis
     Dosage: 2G, QD
     Route: 041
     Dates: start: 20230118, end: 20230118
  3. SODIUM CHLORIDE [Concomitant]
     Active Substance: SODIUM CHLORIDE
     Indication: Vehicle solution use
     Dosage: 100ML, QD
     Route: 041
     Dates: start: 20230118, end: 20230118

REACTIONS (5)
  - Eosinophil count decreased [Recovering/Resolving]
  - Soft tissue disorder [Recovering/Resolving]
  - Oral pain [Recovering/Resolving]
  - Osteopenia [Recovering/Resolving]
  - Lymphadenopathy [Recovering/Resolving]

NARRATIVE: CASE EVENT DATE: 20230118
